FAERS Safety Report 21870040 (Version 2)
Quarter: 2023Q4

REPORT INFORMATION
  Report Type: Report from Study
  Country: CN (occurrence: CN)
  Receive Date: 20230117
  Receipt Date: 20231206
  Transmission Date: 20240110
  Serious: Yes (Other)
  Sender: FDA-Public Use
  Company Number: CN-TAKEDA-2023TUS004456

PATIENT
  Age: 35 Year
  Sex: Male
  Weight: 60 kg

DRUGS (8)
  1. VEDOLIZUMAB [Suspect]
     Active Substance: VEDOLIZUMAB
     Indication: Crohn^s disease
     Dosage: 300 MILLIGRAM
     Route: 042
     Dates: start: 20220706
  2. SODIUM CHLORIDE [Concomitant]
     Active Substance: SODIUM CHLORIDE
     Indication: Inflammatory bowel disease
     Dosage: 250 MILLILITER, QD
     Route: 042
     Dates: start: 20220706, end: 20220706
  3. SODIUM CHLORIDE [Concomitant]
     Active Substance: SODIUM CHLORIDE
     Dosage: 100 MILLILITER, QD
     Route: 042
     Dates: start: 20220706, end: 20220706
  4. SODIUM CHLORIDE [Concomitant]
     Active Substance: SODIUM CHLORIDE
     Dosage: 250 MILLILITER, QD
     Route: 042
     Dates: start: 20220720, end: 20220720
  5. SODIUM CHLORIDE [Concomitant]
     Active Substance: SODIUM CHLORIDE
     Dosage: 100 MILLILITER, QD
     Route: 042
     Dates: start: 20220720, end: 20220720
  6. SODIUM CHLORIDE [Concomitant]
     Active Substance: SODIUM CHLORIDE
     Dosage: 250 MILLILITER, QD
     Route: 042
     Dates: start: 20220819, end: 20220819
  7. SODIUM CHLORIDE [Concomitant]
     Active Substance: SODIUM CHLORIDE
     Dosage: 100 MILLILITER, QD
     Route: 042
     Dates: start: 20220819, end: 20220819
  8. Bifid.triple viable [Concomitant]
     Indication: Dysbiosis
     Dosage: 420 MILLIGRAM, TID
     Route: 048
     Dates: start: 20230720, end: 202308

REACTIONS (3)
  - Renal failure [Not Recovered/Not Resolved]
  - COVID-19 [Recovered/Resolved]
  - Haematuria [Not Recovered/Not Resolved]

NARRATIVE: CASE EVENT DATE: 20221021
